FAERS Safety Report 9729174 (Version 1)
Quarter: 2013Q4

REPORT INFORMATION
  Report Type: Spontaneous
  Country: US (occurrence: None)
  Receive Date: 20131203
  Receipt Date: 20131203
  Transmission Date: 20140711
  Serious: Yes (Hospitalization)
  Sender: FDA-Public Use
  Company Number: None

PATIENT
  Sex: Male

DRUGS (1)
  1. ZYTIGA [Suspect]
     Route: 048
     Dates: start: 20131102, end: 201311

REACTIONS (3)
  - Neoplasm malignant [None]
  - Hypoaesthesia [None]
  - Asthenia [None]
